FAERS Safety Report 6701000-9 (Version None)
Quarter: 2010Q2

REPORT INFORMATION
  Report Type: 
  Country: None (occurrence: None)
  Receive Date: 20100428
  Receipt Date: 20100419
  Transmission Date: 20101027
  Serious: Yes (Other)
  Sender: FDA-Public Use
  Company Number: NO-PFIZER INC-2010048756

PATIENT
  Age: 43 Year
  Sex: Female

DRUGS (1)
  1. LYRICA [Suspect]
     Dosage: 600 MG DAILY
     Dates: end: 20100414

REACTIONS (4)
  - HEART RATE IRREGULAR [None]
  - HYPERHIDROSIS [None]
  - NERVOUSNESS [None]
  - PAIN [None]
